FAERS Safety Report 7910169-X (Version None)
Quarter: 2011Q4

REPORT INFORMATION
  Report Type: 
  Country: None (occurrence: None)
  Receive Date: 20111111
  Receipt Date: 20111028
  Transmission Date: 20120403
  Serious: Yes (Life-Threatening)
  Sender: FDA-Public Use
  Company Number: AU-ROCHE-1008353

PATIENT
  Sex: Male

DRUGS (1)
  1. ACTEMRA [Suspect]
     Indication: RHEUMATOID ARTHRITIS
     Route: 065
     Dates: start: 20110225

REACTIONS (5)
  - PALLOR [None]
  - CHEST DISCOMFORT [None]
  - OROPHARYNGEAL DISCOMFORT [None]
  - CHEST PAIN [None]
  - MALAISE [None]
